FAERS Safety Report 7907672-5 (Version None)
Quarter: 2011Q4

REPORT INFORMATION
  Report Type: 
  Country: None (occurrence: None)
  Receive Date: 20111109
  Receipt Date: 20111109
  Transmission Date: 20120403
  Serious: Yes (Other)
  Sender: FDA-Public Use
  Company Number: None

PATIENT
  Age: 61 Year
  Sex: Female
  Weight: 76.2043 kg

DRUGS (1)
  1. RECLAST [Suspect]
     Indication: OSTEOPOROSIS
     Dosage: YEARLY, INFUSION
     Dates: start: 20111010

REACTIONS (6)
  - ARTHRALGIA [None]
  - MUSCLE TWITCHING [None]
  - MYALGIA [None]
  - EYE PAIN [None]
  - BONE PAIN [None]
  - INFLUENZA LIKE ILLNESS [None]
